FAERS Safety Report 7749699-2 (Version None)
Quarter: 2011Q3

REPORT INFORMATION
  Report Type: 
  Country: None (occurrence: None)
  Receive Date: 20110914
  Receipt Date: 20110907
  Transmission Date: 20111222
  Serious: Yes (Life-Threatening, Hospitalization, Other)
  Sender: FDA-Public Use
  Company Number: DK-JNJFOC-20110500745

PATIENT
  Sex: Male
  Weight: 70 kg

DRUGS (3)
  1. MICONAZOLE NITRATE [Suspect]
     Route: 048
  2. WARFARIN SODIUM [Interacting]
     Indication: PRODUCT USED FOR UNKNOWN INDICATION
     Route: 065
  3. MICONAZOLE NITRATE [Suspect]
     Indication: ORAL FUNGAL INFECTION
     Dosage: 1/2 SCOPE GEL ADMINISTERED FOUR TIMES DAILY
     Route: 048
     Dates: start: 20110323, end: 20110330

REACTIONS (4)
  - INTERNATIONAL NORMALISED RATIO INCREASED [None]
  - GASTROINTESTINAL HAEMORRHAGE [None]
  - PRODUCT QUALITY ISSUE [None]
  - DRUG INTERACTION [None]
